FAERS Safety Report 4276150-X (Version None)
Quarter: 2004Q1

REPORT INFORMATION
  Report Type: 
  Country: None (occurrence: None)
  Receive Date: 20040121
  Receipt Date: 20031106
  Transmission Date: 20041129
  Serious: No
  Sender: FDA-Public Use
  Company Number: US-GLAXOSMITHKLINE-A0439289A

PATIENT

DRUGS (1)
  1. VALTREX [Suspect]
     Indication: IMMUNOSUPPRESSANT DRUG THERAPY
     Route: 048

REACTIONS (1)
  - WHITE BLOOD CELL COUNT DECREASED [None]
